FAERS Safety Report 10399052 (Version 2)
Quarter: 2014Q3

REPORT INFORMATION
  Report Type: Report from Study
  Country: US (occurrence: US)
  Receive Date: 20140821
  Receipt Date: 20140902
  Transmission Date: 20150326
  Serious: Yes (Death, Hospitalization, Other)
  Sender: FDA-Public Use
  Company Number: US-ALEXION PHARMACEUTICALS INC.-A201403103

PATIENT

DRUGS (1)
  1. SOLIRIS [Suspect]
     Active Substance: ECULIZUMAB
     Indication: PRODUCT USED FOR UNKNOWN INDICATION
     Route: 042

REACTIONS (12)
  - Death [Fatal]
  - Transfusion [Unknown]
  - Dysphagia [Unknown]
  - Palpitations [Unknown]
  - Jaundice [Unknown]
  - Asthenia [Unknown]
  - Chromaturia [Unknown]
  - Unevaluable event [Unknown]
  - Aphagia [Unknown]
  - Dehydration [Unknown]
  - Hepatic enzyme increased [Unknown]
  - Dyspnoea [Unknown]

NARRATIVE: CASE EVENT DATE: 20140811
